FAERS Safety Report 6568720-0 (Version None)
Quarter: 2010Q1

REPORT INFORMATION
  Report Type: 
  Country: None (occurrence: None)
  Receive Date: 20100203
  Receipt Date: 20100129
  Transmission Date: 20100710
  Serious: Yes (Death, Other)
  Sender: FDA-Public Use
  Company Number: PHHY2010ZA04407

PATIENT
  Sex: Female

DRUGS (2)
  1. ZOMETA [Suspect]
     Indication: BREAST CANCER
     Dosage: 4 MG, UNK
     Dates: start: 20070401
  2. CHEMOTHERAPEUTICS NOS [Concomitant]

REACTIONS (3)
  - DEATH [None]
  - DEBRIDEMENT [None]
  - OSTEONECROSIS [None]
